FAERS Safety Report 8761377 (Version 1)
Quarter: 2012Q4

REPORT INFORMATION
  Report Type: 
  Country: US (occurrence: US)
  Receive Date: 20120829
  Receipt Date: 20120829
  Transmission Date: 20130627
  Serious: Yes (Other)
  Sender: FDA-Public Use
  Company Number: US-PFIZER INC-2012207359

PATIENT
  Age: 44 Year
  Sex: Female

DRUGS (2)
  1. METHIMAZOLE [Suspect]
     Indication: BASEDOW^S DISEASE
     Dosage: UNK
  2. PROPYLTHIOURACIL [Suspect]
     Indication: BASEDOW^S DISEASE
     Dosage: UNK

REACTIONS (9)
  - Atrial fibrillation [Recovered/Resolved]
  - Cardiac failure congestive [Unknown]
  - Hyperthyroidism [Unknown]
  - Palpitations [Unknown]
  - Dyspnoea exertional [Unknown]
  - Hepatotoxicity [Unknown]
  - Asthenia [Unknown]
  - Failure to thrive [Unknown]
  - Anaemia [Unknown]
